FAERS Safety Report 8553228 (Version 3)
Quarter: 2014Q1

REPORT INFORMATION
  Report Type: Spontaneous
  Country: US (occurrence: None)
  Receive Date: 20120327
  Receipt Date: 20130724
  Transmission Date: 20141002
  Serious: Yes (Other)
  Sender: FDA-Public Use
  Company Number: PHHY2011US25607

PATIENT
  Age: 65 Year
  Sex: 0

DRUGS (1)
  1. GLEEVEC [Suspect]
     Indication: CHRONIC MYELOID LEUKAEMIA
     Route: 048
     Dates: start: 20110302

REACTIONS (21)
  - Occult blood positive [None]
  - Periorbital oedema [None]
  - Diarrhoea [None]
  - Anaemia [None]
  - Dysgeusia [None]
  - Fatigue [None]
  - Dyspnoea [None]
  - Rash pruritic [None]
  - Visual impairment [None]
  - Thyroid disorder [None]
  - Skin disorder [None]
  - Alopecia [None]
  - Eyelid disorder [None]
  - Nausea [None]
  - Vomiting [None]
  - Rash generalised [None]
  - Muscle spasms [None]
  - Bone pain [None]
  - Myalgia [None]
  - Scleral pigmentation [None]
  - Eye haemorrhage [None]
